FAERS Safety Report 7278505-8 (Version None)
Quarter: 2011Q1

REPORT INFORMATION
  Report Type: 
  Country: None (occurrence: None)
  Receive Date: 20110207
  Receipt Date: 20110127
  Transmission Date: 20110831
  Serious: Yes (Hospitalization)
  Sender: FDA-Public Use
  Company Number: JP-JNJFOC-20101006882

PATIENT
  Age: 58 Year
  Sex: Male
  Weight: 70 kg

DRUGS (15)
  1. LOCOIDON [Concomitant]
     Indication: PSORIASIS
  2. ANTEBATE [Concomitant]
     Indication: PSORIASIS
  3. PARIET [Concomitant]
     Indication: PROPHYLAXIS
     Route: 048
  4. REMICADE [Suspect]
     Route: 042
  5. AMLODIPINE [Concomitant]
     Indication: HYPERTENSION
     Route: 048
  6. REMICADE [Suspect]
     Indication: PSORIASIS
     Route: 042
  7. ACTONEL [Concomitant]
     Indication: PROPHYLAXIS
     Route: 048
  8. MYSER [Concomitant]
     Indication: PSORIASIS
  9. STARSIS [Concomitant]
     Indication: DIABETES MELLITUS
     Route: 048
  10. ANTEBATE [Concomitant]
  11. BEZATOL [Concomitant]
     Indication: HYPERLIPIDAEMIA
     Route: 048
  12. RINDERON-V [Concomitant]
     Indication: PSORIASIS
  13. OXAROL [Concomitant]
     Indication: PSORIASIS
  14. MELBIN [Concomitant]
     Route: 048
  15. PREDONINE [Suspect]
     Indication: AUTOIMMUNE DISORDER
     Route: 048

REACTIONS (5)
  - PNEUMONIA BACTERIAL [None]
  - BLOOD BETA-D-GLUCAN INCREASED [None]
  - BLOOD IMMUNOGLOBULIN G DECREASED [None]
  - PLEURAL INFECTION BACTERIAL [None]
  - CYTOMEGALOVIRUS INFECTION [None]
